FAERS Safety Report 16687266 (Version 1)
Quarter: 2019Q3

REPORT INFORMATION
  Report Type: Spontaneous
  Country: ES (occurrence: ES)
  Receive Date: 20190809
  Receipt Date: 20190809
  Transmission Date: 20191004
  Serious: Yes (Life-Threatening, Hospitalization, Other)
  Sender: FDA-Public Use
  Company Number: ES-APOTEX-2019AP019743

PATIENT
  Age: 102 Year
  Sex: Female

DRUGS (17)
  1. LACOSAMIDE. [Suspect]
     Active Substance: LACOSAMIDE
     Indication: STATUS EPILEPTICUS
     Dosage: 100 MG, QD
     Route: 042
  2. RISPERIDONE. [Concomitant]
     Active Substance: RISPERIDONE
     Indication: ANXIETY
  3. TRAZODONE [Suspect]
     Active Substance: TRAZODONE HYDROCHLORIDE
     Indication: PSYCHOTHERAPY
     Dosage: UNK
     Route: 065
  4. RISPERIDONE. [Concomitant]
     Active Substance: RISPERIDONE
     Indication: NERVOUSNESS
     Dosage: UNK
     Route: 065
  5. LACOSAMIDE. [Suspect]
     Active Substance: LACOSAMIDE
     Dosage: UNK
     Route: 065
  6. HYDROCHLOROTHIAZIDE. [Concomitant]
     Active Substance: HYDROCHLOROTHIAZIDE
     Indication: PRODUCT USED FOR UNKNOWN INDICATION
     Dosage: UNK
     Route: 065
  7. AMOXICILLIN, CLAVULANATE [Suspect]
     Active Substance: AMOXICILLIN\CLAVULANATE POTASSIUM
     Indication: URINARY TRACT INFECTION
     Dosage: UNK
     Route: 065
  8. VALPROIC ACID. [Suspect]
     Active Substance: VALPROIC ACID
     Indication: TONIC CONVULSION
     Dosage: 800 UNK, UNK
     Route: 042
  9. BROMAZEPAM [Suspect]
     Active Substance: BROMAZEPAM
     Indication: PSYCHOTHERAPY
     Dosage: UNK
     Route: 065
  10. LEVETIRACETAM. [Suspect]
     Active Substance: LEVETIRACETAM
     Indication: STATUS EPILEPTICUS
     Dosage: 750 MG, QD
     Route: 065
  11. CLONAZEPAM. [Concomitant]
     Active Substance: CLONAZEPAM
     Indication: ANXIETY
  12. LEVETIRACETAM. [Suspect]
     Active Substance: LEVETIRACETAM
     Dosage: 1000 MG, UNK DAILY
     Route: 042
  13. VALPROIC ACID. [Suspect]
     Active Substance: VALPROIC ACID
     Dosage: 1200 UNK, QD
     Route: 065
  14. CLONAZEPAM. [Concomitant]
     Active Substance: CLONAZEPAM
     Indication: NERVOUSNESS
     Dosage: UNK
     Route: 065
  15. PANTOPRAZOLE [Concomitant]
     Active Substance: PANTOPRAZOLE
     Indication: PRODUCT USED FOR UNKNOWN INDICATION
     Dosage: UNK
     Route: 065
  16. AMILORIDE [Concomitant]
     Active Substance: AMILORIDE
     Indication: PRODUCT USED FOR UNKNOWN INDICATION
     Dosage: UNK
     Route: 065
  17. VALPROIC ACID. [Suspect]
     Active Substance: VALPROIC ACID
     Indication: STATUS EPILEPTICUS
     Dosage: 1000 MG, QD
     Route: 065

REACTIONS (5)
  - Off label use [Unknown]
  - Tonic convulsion [Recovered/Resolved]
  - Drug ineffective for unapproved indication [Recovering/Resolving]
  - Status epilepticus [Recovering/Resolving]
  - Drug ineffective [Unknown]
